FAERS Safety Report 25388430 (Version 1)
Quarter: 2025Q2

REPORT INFORMATION
  Report Type: Spontaneous
  Country: US (occurrence: US)
  Receive Date: 20250603
  Receipt Date: 20250603
  Transmission Date: 20250717
  Serious: No
  Sender: AMNEAL
  Company Number: US-AMNEAL PHARMACEUTICALS-2024-AMRX-01797

PATIENT
  Sex: Female
  Weight: 52.154 kg

DRUGS (3)
  1. VORICONAZOLE [Suspect]
     Active Substance: VORICONAZOLE
     Indication: Pneumonia fungal
     Dosage: UNK, 2X/DAY
     Route: 048
     Dates: start: 20240311
  2. ZOLOFT [Concomitant]
     Active Substance: SERTRALINE HYDROCHLORIDE
     Indication: Product used for unknown indication
     Dosage: 50 MILLIGRAM, 1X/DAY
     Route: 065
  3. ALBUTEROL SULFATE [Concomitant]
     Active Substance: ALBUTEROL SULFATE
     Indication: Product used for unknown indication
     Dosage: 90 MILLIGRAM, 1X/MONTH
     Route: 065

REACTIONS (3)
  - Adverse drug reaction [Unknown]
  - Tanning [Not Recovered/Not Resolved]
  - Visual impairment [Not Recovered/Not Resolved]
